FAERS Safety Report 7334516-5 (Version None)
Quarter: 2011Q1

REPORT INFORMATION
  Report Type: 
  Country: None (occurrence: None)
  Receive Date: 20110307
  Receipt Date: 20110225
  Transmission Date: 20110831
  Serious: Yes (Hospitalization)
  Sender: FDA-Public Use
  Company Number: US-US-EMD SERONO, INC.-7035246

PATIENT
  Sex: Female

DRUGS (2)
  1. ADVIL LIQUI-GELS [Concomitant]
     Indication: PREMEDICATION
  2. REBIF [Suspect]
     Indication: MULTIPLE SCLEROSIS
     Route: 058
     Dates: start: 20100719

REACTIONS (5)
  - INJECTION SITE HAEMATOMA [None]
  - URINARY TRACT INFECTION [None]
  - MULTIPLE SCLEROSIS RELAPSE [None]
  - INJECTION SITE ERYTHEMA [None]
  - DRY SKIN [None]
